FAERS Safety Report 5630521-5 (Version None)
Quarter: 2008Q1

REPORT INFORMATION
  Report Type: 
  Country: None (occurrence: None)
  Receive Date: 20080219
  Receipt Date: 20080208
  Transmission Date: 20080703
  Serious: Yes (Other)
  Sender: FDA-Public Use
  Company Number: US-AMGEN-QUU264684

PATIENT
  Sex: Female

DRUGS (2)
  1. ENBREL [Suspect]
     Indication: RHEUMATOID ARTHRITIS
     Route: 058
     Dates: start: 20040601
  2. METHOTREXATE [Concomitant]

REACTIONS (5)
  - MEMORY IMPAIRMENT [None]
  - MYALGIA [None]
  - SOMNOLENCE [None]
  - SYSTEMIC LUPUS ERYTHEMATOSUS [None]
  - VITAMIN D DEFICIENCY [None]
